FAERS Safety Report 5068966-7 (Version None)
Quarter: 2006Q3

REPORT INFORMATION
  Report Type: 
  Country: None (occurrence: None)
  Receive Date: 20060801
  Receipt Date: 20060801
  Transmission Date: 20061208
  Serious: Yes (Hospitalization)
  Sender: FDA-Public Use
  Company Number: None

PATIENT
  Age: 67 Year
  Sex: Male
  Weight: 60 kg

DRUGS (13)
  1. BACTRIM DS [Suspect]
     Indication: URINARY TRACT INFECTION
     Dosage: 800 /160 MG TAB TWICE DAILTY PO
     Route: 048
     Dates: start: 20060426, end: 20060502
  2. WARFARIN 2.5 MG  BRISTOL-MYERS SQUIBB [Suspect]
     Indication: ACUTE MYOCARDIAL INFARCTION
     Dosage: 2.5 MG MO-SAT , 1.25 MG DAILY PO
     Route: 048
  3. WARFARIN 2.5 MG  BRISTOL-MYERS SQUIBB [Suspect]
     Indication: CEREBROVASCULAR ACCIDENT
     Dosage: 2.5 MG MO-SAT , 1.25 MG DAILY PO
     Route: 048
  4. ACETAMINOPHEN [Concomitant]
  5. ALBUTEROL [Concomitant]
  6. BAG, LEG MEDIUM STERILE [Concomitant]
  7. FELODIPINE [Concomitant]
  8. FREEDOM CATH EXTERNAL CATHETER MED [Concomitant]
  9. GABAPENTIN [Concomitant]
  10. HYDROCHLOROTHIAZIDE [Concomitant]
  11. LANCET [Concomitant]
  12. LISINOPRIL [Concomitant]
  13. METOPROLOL TARTRATE [Concomitant]

REACTIONS (10)
  - ASTHENIA [None]
  - DRUG INTERACTION [None]
  - FEELING ABNORMAL [None]
  - HYPERKALAEMIA [None]
  - INTERNATIONAL NORMALISED RATIO INCREASED [None]
  - NAUSEA [None]
  - NERVOUSNESS [None]
  - PARKINSON'S DISEASE [None]
  - RENAL FAILURE ACUTE [None]
  - TREMOR [None]
